FAERS Safety Report 20946635 (Version 10)
Quarter: 2022Q3

REPORT INFORMATION
  Report Type: Spontaneous
  Country: FR (occurrence: FR)
  Receive Date: 20220610
  Receipt Date: 20220728
  Transmission Date: 20221027
  Serious: Yes (Life-Threatening, Hospitalization, Other)
  Sender: FDA-Public Use
  Company Number: FR-BRISTOL-MYERS SQUIBB COMPANY-BMS-2020-045322

PATIENT
  Age: 57 Year
  Sex: Male

DRUGS (7)
  1. ELIQUIS [Interacting]
     Active Substance: APIXABAN
     Indication: Ventricular fibrillation
     Dosage: 5 MG, 1X/DAY
  2. ELIQUIS [Interacting]
     Active Substance: APIXABAN
     Indication: Congestive cardiomyopathy
  3. PANTOPRAZOLE [Suspect]
     Active Substance: PANTOPRAZOLE
     Indication: Shock haemorrhagic
     Dosage: 80 MG, 1X/DAY
     Route: 042
  4. EVEROLIMUS [Interacting]
     Active Substance: EVEROLIMUS
     Indication: Liver transplant
     Dosage: UNK
  5. EVEROLIMUS [Interacting]
     Active Substance: EVEROLIMUS
     Indication: Immunosuppressant drug therapy
  6. EPINEPHRINE [Suspect]
     Active Substance: EPINEPHRINE
     Indication: Shock haemorrhagic
     Dosage: UNK
  7. PANTOPRAZOLE [Concomitant]
     Active Substance: PANTOPRAZOLE
     Indication: Shock haemorrhagic
     Dosage: 80 MG, 1X/DAY

REACTIONS (7)
  - Drug interaction [Unknown]
  - Gastroduodenal haemorrhage [Recovered/Resolved]
  - Shock haemorrhagic [Recovering/Resolving]
  - Drug ineffective [Unknown]
  - Off label use [Unknown]
  - Cardiac arrest [Unknown]
  - Intentional product use issue [Unknown]
